FAERS Safety Report 23775810 (Version 2)
Quarter: 2025Q1

REPORT INFORMATION
  Report Type: Report from Study
  Country: ES (occurrence: ES)
  Receive Date: 20240424
  Receipt Date: 20250208
  Transmission Date: 20250409
  Serious: Yes (Death, Other)
  Sender: ABBVIE
  Company Number: ES-JNJFOC-20240440490

PATIENT
  Age: 64 Year
  Sex: Male

DRUGS (3)
  1. IMBRUVICA [Suspect]
     Active Substance: IBRUTINIB
     Indication: B-cell lymphoma
     Route: 048
  2. PARSACLISIB [Suspect]
     Active Substance: PARSACLISIB
     Indication: B-cell lymphoma
     Dosage: 20MG ONCE DAILY (QD) ORALLY FOR 8WEEKS
     Route: 048
  3. PARSACLISIB [Suspect]
     Active Substance: PARSACLISIB
     Indication: B-cell lymphoma
     Route: 048

REACTIONS (7)
  - COVID-19 pneumonia [Fatal]
  - Acute kidney injury [Fatal]
  - Septic shock [Fatal]
  - Alanine aminotransferase increased [Unknown]
  - Atrial fibrillation [Unknown]
  - Neutropenia [Unknown]
  - Aspartate aminotransferase increased [Unknown]
